FAERS Safety Report 15846869 (Version 3)
Quarter: 2019Q2

REPORT INFORMATION
  Report Type: Report from Study
  Country: None (occurrence: US)
  Receive Date: 20190121
  Receipt Date: 20190402
  Transmission Date: 20190711
  Serious: Yes (Other)
  Sender: FDA-Public Use
  Company Number: US-ABBVIE-18K-163-2222817-00

PATIENT
  Age: 60 Year
  Sex: Female
  Weight: 99.88 kg

DRUGS (16)
  1. PRILOSEC [Concomitant]
     Active Substance: OMEPRAZOLE MAGNESIUM
     Indication: PRODUCT USED FOR UNKNOWN INDICATION
     Dosage: OTC
  2. XYZAL [Concomitant]
     Active Substance: LEVOCETIRIZINE DIHYDROCHLORIDE
     Indication: SEASONAL ALLERGY
     Dosage: IN THE EVENING
  3. ELAVIL [Concomitant]
     Active Substance: AMITRIPTYLINE HYDROCHLORIDE
     Indication: PAIN MANAGEMENT
  4. FOLIC ACID. [Concomitant]
     Active Substance: FOLIC ACID
     Indication: PRODUCT USED FOR UNKNOWN INDICATION
  5. NASONEX [Concomitant]
     Active Substance: MOMETASONE FUROATE
     Indication: SEASONAL ALLERGY
  6. AZULFIDINE [Concomitant]
     Active Substance: SULFASALAZINE
     Indication: ARTHRITIS
     Dosage: 2 TABLETS BID
  7. GABAPENTIN. [Concomitant]
     Active Substance: GABAPENTIN
     Indication: ARTHRITIS
     Dosage: 2 TABLETS IN THE MORNING AND 4 TABLETS IN  THE EVENING
  8. ESTROVEN [Concomitant]
     Active Substance: DIETARY SUPPLEMENT
     Indication: MENOPAUSAL SYMPTOMS
  9. PERCOCET [Concomitant]
     Active Substance: ACETAMINOPHEN\OXYCODONE HYDROCHLORIDE
     Indication: PAIN IN EXTREMITY
     Dosage: 5/325 MG
  10. ELAVIL [Concomitant]
     Active Substance: AMITRIPTYLINE HYDROCHLORIDE
     Indication: SLEEP DISORDER THERAPY
     Dosage: IN THE EVENING
  11. BENADRYL [Concomitant]
     Active Substance: DIPHENHYDRAMINE HYDROCHLORIDE
     Indication: PARANASAL SINUS HYPERSECRETION
  12. MAGNESIUM [Concomitant]
     Active Substance: MAGNESIUM
     Indication: MUSCLE SPASMS
  13. DICLOFENAC [Concomitant]
     Active Substance: DICLOFENAC
     Indication: ARTHRITIS
  14. VITAMIN D 2000 [Concomitant]
     Active Substance: VITAMIN D NOS
     Indication: PRODUCT USED FOR UNKNOWN INDICATION
  15. HUMIRA [Suspect]
     Active Substance: ADALIMUMAB
     Indication: RHEUMATOID ARTHRITIS
     Route: 058
     Dates: start: 201612, end: 201801
  16. LIDOCAINE. [Concomitant]
     Active Substance: LIDOCAINE
     Indication: PAIN IN EXTREMITY
     Dosage: PATCH- B/L FEET DAILY

REACTIONS (24)
  - Pulmonary embolism [Recovered/Resolved]
  - Gastrointestinal bacterial overgrowth [Not Recovered/Not Resolved]
  - Factor V Leiden mutation [Unknown]
  - Sinusitis [Recovered/Resolved]
  - Dry mouth [Unknown]
  - Ill-defined disorder [Unknown]
  - Sinusitis [Recovered/Resolved]
  - Rheumatoid arthritis [Unknown]
  - Dry eye [Not Recovered/Not Resolved]
  - Muscle spasms [Unknown]
  - Hair texture abnormal [Unknown]
  - Thirst [Unknown]
  - Injection site pain [Unknown]
  - Retinal haemorrhage [Unknown]
  - Dry skin [Unknown]
  - Trichorrhexis [Unknown]
  - Pain [Not Recovered/Not Resolved]
  - Lacrimation increased [Unknown]
  - Pulmonary embolism [Unknown]
  - Malaise [Unknown]
  - Vision blurred [Unknown]
  - Ear infection [Unknown]
  - Sinusitis [Recovered/Resolved]
  - Sinusitis [Recovered/Resolved]

NARRATIVE: CASE EVENT DATE: 201708
